FAERS Safety Report 5652591-0 (Version None)
Quarter: 2008Q1

REPORT INFORMATION
  Report Type: 
  Country: None (occurrence: None)
  Receive Date: 20080306
  Receipt Date: 20080226
  Transmission Date: 20080703
  Serious: Yes (Hospitalization, Other)
  Sender: FDA-Public Use
  Company Number: CA-JNJFOC-20080207034

PATIENT
  Sex: Male
  Weight: 74.5 kg

DRUGS (17)
  1. REMICADE [Suspect]
     Route: 042
  2. REMICADE [Suspect]
     Route: 042
  3. REMICADE [Suspect]
     Route: 042
  4. REMICADE [Suspect]
     Route: 042
  5. REMICADE [Suspect]
     Route: 042
  6. REMICADE [Suspect]
     Route: 042
  7. REMICADE [Suspect]
     Indication: ANKYLOSING SPONDYLITIS
     Route: 042
  8. REMICADE [Suspect]
     Indication: CROHN'S DISEASE
     Dosage: 4 DOSES IN SPRING 2006
     Route: 042
  9. PENTASA [Concomitant]
     Dosage: 2 TABLETS 4 TIMES DAILY
     Route: 048
  10. CELEBREX [Concomitant]
  11. CITALOPRAM HYDROBROMIDE [Concomitant]
     Route: 048
  12. ATIVAN [Concomitant]
  13. COLACE [Concomitant]
  14. DESYREL [Concomitant]
     Route: 048
  15. PALAFER [Concomitant]
     Route: 048
  16. DURGESIC [Concomitant]
     Route: 062
  17. ATASOL+CODEINE [Concomitant]
     Dosage: EVERY 4 - 6 HOURS AS NEEDED

REACTIONS (3)
  - FALL [None]
  - HIP ARTHROPLASTY [None]
  - HIP FRACTURE [None]
